FAERS Safety Report 8904776 (Version 1)
Quarter: 2012Q4

REPORT INFORMATION
  Report Type: 
  Country: US (occurrence: US)
  Receive Date: 20121112
  Receipt Date: 20121112
  Transmission Date: 20130627
  Serious: Yes (Death)
  Sender: FDA-Public Use
  Company Number: US-PFIZER INC-2012278697

PATIENT
  Age: 61 Year
  Sex: Female

DRUGS (4)
  1. SOMAVERT [Suspect]
     Indication: ACROMEGALY
     Dosage: 20 mg, once per day
     Route: 058
  2. XELODA [Concomitant]
     Dosage: UNK
  3. BENICAR [Concomitant]
     Dosage: 5 mg, UNK
  4. LEVOTHYROXINE [Concomitant]
     Dosage: 25 ug, UNK

REACTIONS (1)
  - Death [Fatal]
